FAERS Safety Report 4683637-4 (Version None)
Quarter: 2005Q2

REPORT INFORMATION
  Report Type: 
  Country: None (occurrence: None)
  Receive Date: 20050602
  Receipt Date: 20050307
  Transmission Date: 20051028
  Serious: No
  Sender: FDA-Public Use
  Company Number: US_0503114544

PATIENT
  Age: 75 Year
  Sex: Female

DRUGS (7)
  1. ZYPREXA [Suspect]
  2. CYMBALTA [Suspect]
  3. PREDNISONE [Concomitant]
  4. ELAVIL [Concomitant]
  5. KLONOPIN [Concomitant]
  6. REMERON (MIRTAZAPINE ORIFARM) [Concomitant]
  7. NEURONTIN [Concomitant]

REACTIONS (1)
  - SUNBURN [None]
